FAERS Safety Report 24272054 (Version 1)
Quarter: 2024Q3

REPORT INFORMATION
  Report Type: Other
  Country: DE (occurrence: DE)
  Receive Date: 20240902
  Receipt Date: 20240902
  Transmission Date: 20241016
  Serious: Yes (Death)
  Sender: DEXCEL
  Company Number: DE-DEXPHARM-2024-2937

PATIENT
  Age: 17 Year
  Sex: Male

DRUGS (4)
  1. DICLOFENAC [Interacting]
     Active Substance: DICLOFENAC
  2. RANITIDINE [Interacting]
     Active Substance: RANITIDINE
  3. LOPERAMIDE [Interacting]
     Active Substance: LOPERAMIDE
  4. TRAMADOL [Interacting]
     Active Substance: TRAMADOL\TRAMADOL HYDROCHLORIDE

REACTIONS (2)
  - Toxicity to various agents [Fatal]
  - Drug interaction [Fatal]
